FAERS Safety Report 6770897-9 (Version None)
Quarter: 2010Q2

REPORT INFORMATION
  Report Type: 
  Country: None (occurrence: None)
  Receive Date: 20100616
  Receipt Date: 20100611
  Transmission Date: 20101027
  Serious: Yes (Hospitalization)
  Sender: FDA-Public Use
  Company Number: US-BIOGENIDEC-2009BI028969

PATIENT
  Age: 45 Year
  Sex: Female

DRUGS (7)
  1. TYSABRI [Suspect]
     Indication: MULTIPLE SCLEROSIS
     Route: 042
     Dates: start: 20090701
  2. LAMICTAL [Concomitant]
     Indication: DEPRESSION
  3. ZOLOFT [Concomitant]
     Indication: DEPRESSION
  4. KLONOPIN [Concomitant]
     Indication: DEPRESSION
  5. RITALIN [Concomitant]
     Indication: ATTENTION DEFICIT/HYPERACTIVITY DISORDER
  6. TRAMADOL HCL [Concomitant]
     Indication: SPINAL COLUMN STENOSIS
  7. GABAPENTIN [Concomitant]
     Indication: PAIN

REACTIONS (6)
  - DEPRESSION [None]
  - DEPRESSION SUICIDAL [None]
  - MUSCLE STRAIN [None]
  - MYALGIA [None]
  - SCIATICA [None]
  - SPINAL COLUMN STENOSIS [None]
